FAERS Safety Report 7083842-6 (Version None)
Quarter: 2010Q4

REPORT INFORMATION
  Report Type: 
  Country: None (occurrence: None)
  Receive Date: 20101104
  Receipt Date: 20101101
  Transmission Date: 20110411
  Serious: Yes (Hospitalization, Other)
  Sender: FDA-Public Use
  Company Number: US-BRISTOL-MYERS SQUIBB COMPANY-15363880

PATIENT
  Age: 56 Year
  Sex: Male
  Weight: 58 kg

DRUGS (11)
  1. PACLITAXEL [Suspect]
     Indication: NON-SMALL CELL LUNG CANCER
     Route: 042
     Dates: start: 20100225, end: 20100429
  2. CARBOPLATIN [Suspect]
     Indication: NON-SMALL CELL LUNG CANCER
     Dosage: 1DF=6AUC
     Route: 042
     Dates: start: 20100225, end: 20100429
  3. BEVACIZUMAB [Suspect]
     Indication: NON-SMALL CELL LUNG CANCER
     Dosage: DRUG INTERRUPTED ON 28MAY2010.23FEB-28MAY10(95DAYS).NO OF INFUSIONS:1
     Route: 042
     Dates: start: 20100223
  4. PRILOSEC [Concomitant]
     Dates: start: 20080101
  5. LORTAB [Concomitant]
     Dates: start: 20080101
  6. MORPHINE [Concomitant]
     Dates: start: 20100515
  7. ZOFRAN [Concomitant]
     Dates: start: 20100515
  8. ATIVAN [Concomitant]
     Dates: start: 20100518
  9. COUMADIN [Concomitant]
     Indication: DEEP VEIN THROMBOSIS
     Dates: start: 20100515
  10. LOVENOX [Concomitant]
     Indication: PULMONARY EMBOLISM
     Dates: start: 20100515
  11. COLACE [Concomitant]
     Dates: start: 20100518

REACTIONS (2)
  - IMPAIRED HEALING [None]
  - SKIN DISORDER [None]
